FAERS Safety Report 25870881 (Version 1)
Quarter: 2025Q4

REPORT INFORMATION
  Report Type: Spontaneous
  Country: US (occurrence: None)
  Receive Date: 20251001
  Receipt Date: 20251001
  Transmission Date: 20260117
  Serious: Yes (Hospitalization)
  Sender: FDA-CTU
  Company Number: None

PATIENT
  Sex: Female

DRUGS (2)
  1. CAPECITABINE [Suspect]
     Active Substance: CAPECITABINE
     Indication: Breast cancer female
     Dosage: 1000 MG TWICE A DAY ORAL ?
     Route: 048
     Dates: start: 20231025
  2. CAPECITABINE [Suspect]
     Active Substance: CAPECITABINE
     Indication: Breast cancer female
     Dosage: 300 MG TWICE A DAY ORAL
     Route: 048
     Dates: start: 20231025

REACTIONS (4)
  - Fall [None]
  - Pleural effusion [None]
  - Pulmonary haemorrhage [None]
  - Therapy interrupted [None]
